FAERS Safety Report 7524901-0 (Version None)
Quarter: 2011Q2

REPORT INFORMATION
  Report Type: 
  Country: None (occurrence: None)
  Receive Date: 20110606
  Receipt Date: 20110527
  Transmission Date: 20111010
  Serious: Yes (Death, Other)
  Sender: FDA-Public Use
  Company Number: US-CELGENEUS-163-21880-11053895

PATIENT
  Age: 62 Year
  Sex: Male

DRUGS (13)
  1. REVLIMID [Suspect]
     Dosage: 5 MILLIGRAM
     Route: 048
     Dates: start: 20100501, end: 20101001
  2. REVLIMID [Suspect]
     Dosage: 10 MILLIGRAM
     Route: 048
     Dates: start: 20101001, end: 20110101
  3. PRBC [Concomitant]
     Dosage: 2 IU (INTERNATIONAL UNIT)
     Route: 051
     Dates: start: 20110201, end: 20110201
  4. GABAPENTIN [Concomitant]
     Route: 065
  5. FENTANYL [Concomitant]
     Route: 065
  6. REVLIMID [Suspect]
     Indication: MULTIPLE MYELOMA
     Dosage: 5 MILLIGRAM
     Route: 048
     Dates: start: 20100401, end: 20100501
  7. LORAZEPAM [Concomitant]
     Route: 065
  8. MORPHINE [Concomitant]
     Route: 065
  9. OMEPRAZOLE [Concomitant]
     Route: 065
  10. REVLIMID [Suspect]
     Dosage: 5 MILLIGRAM
     Route: 048
     Dates: start: 20110101, end: 20110201
  11. HALOPERIDOL [Concomitant]
     Route: 065
  12. AREDIA [Concomitant]
     Route: 065
     Dates: start: 20100501
  13. PLATELETS [Concomitant]
     Dosage: 1 IU (INTERNATIONAL UNIT)
     Route: 051
     Dates: start: 20110201, end: 20110201

REACTIONS (3)
  - PANCYTOPENIA [None]
  - DEATH [None]
  - CELLULITIS [None]
